FAERS Safety Report 7147881-9 (Version None)
Quarter: 2010Q4

REPORT INFORMATION
  Report Type: 
  Country: None (occurrence: None)
  Receive Date: 20101206
  Receipt Date: 20101206
  Transmission Date: 20110411
  Serious: No
  Sender: FDA-Public Use
  Company Number: None

PATIENT
  Sex: Male
  Weight: 116.7 kg

DRUGS (3)
  1. FLUOROURACIL [Suspect]
     Dosage: 6916 MG
     Dates: end: 20101111
  2. OXALIPLATIN [Suspect]
     Dosage: 210 MG
     Dates: end: 20101111
  3. LEUCOVORIN [Suspect]
     Dosage: 988 MG
     Dates: end: 20101111

REACTIONS (2)
  - NEUTROPENIA [None]
  - WHITE BLOOD CELL COUNT ABNORMAL [None]
